FAERS Safety Report 13084323 (Version 1)
Quarter: 2017Q1

REPORT INFORMATION
  Report Type: Spontaneous
  Country: US (occurrence: US)
  Receive Date: 20170104
  Receipt Date: 20170104
  Transmission Date: 20170428
  Serious: No
  Sender: FDA-Public Use
  Company Number: None

PATIENT

DRUGS (1)
  1. ASCORBIC ACID. [Suspect]
     Active Substance: ASCORBIC ACID

REACTIONS (3)
  - Product label issue [None]
  - Blood glucose false positive [None]
  - Hypoglycaemia [None]
